FAERS Safety Report 13935748 (Version 1)
Quarter: 2017Q3

REPORT INFORMATION
  Report Type: Spontaneous
  Country: US (occurrence: US)
  Receive Date: 20170905
  Receipt Date: 20170905
  Transmission Date: 20171127
  Serious: No
  Sender: FDA-Public Use
  Company Number: US-ASTRAZENECA-2017SE87088

PATIENT
  Age: 66 Year
  Sex: Male
  Weight: 133.8 kg

DRUGS (4)
  1. BEVESPI AEROSPHERE [Suspect]
     Active Substance: FORMOTEROL FUMARATE\GLYCOPYRROLATE
     Indication: CHRONIC OBSTRUCTIVE PULMONARY DISEASE
     Dosage: 2 PUFFS TWICE A DAY
     Route: 055
  2. DUONEB SODIUM CHLORIDE (IPRATROPIUM BROMIDE/ALBUTEROL) [Concomitant]
     Indication: BRONCHOSPASM
     Route: 065
  3. BEVESPI AEROSPHERE [Suspect]
     Active Substance: FORMOTEROL FUMARATE\GLYCOPYRROLATE
     Indication: THERAPY CESSATION
     Dosage: 2 PUFFS TWICE A DAY
     Route: 055
  4. ANORO ELLIPTA [Concomitant]
     Active Substance: UMECLIDINIUM BROMIDE\VILANTEROL TRIFENATATE
     Route: 065

REACTIONS (3)
  - Product use in unapproved indication [Unknown]
  - Cough [Unknown]
  - Off label use [Not Recovered/Not Resolved]
